FAERS Safety Report 13294177 (Version 1)
Quarter: 2017Q1

REPORT INFORMATION
  Report Type: Spontaneous
  Country: JP (occurrence: JP)
  Receive Date: 20170303
  Receipt Date: 20170303
  Transmission Date: 20170428
  Serious: Yes (Life-Threatening, Hospitalization)
  Sender: FDA-Public Use
  Company Number: JP-BAYER-2017-039354

PATIENT
  Age: 70 Year
  Sex: Female

DRUGS (5)
  1. ARGATROBAN. [Suspect]
     Active Substance: ARGATROBAN
     Indication: CAPSULAR WARNING SYNDROME
     Dosage: 60 MG, QD
  2. ACETYLSALICYLIC ACID (} 100 MG) [Suspect]
     Active Substance: ASPIRIN
     Indication: CAPSULAR WARNING SYNDROME
     Dosage: 100 MG, QD
  3. ATORVASTATIN [Suspect]
     Active Substance: ATORVASTATIN
     Indication: CAPSULAR WARNING SYNDROME
     Dosage: 10 MG, QD
  4. EDARAVONE [Suspect]
     Active Substance: EDARAVONE
     Indication: CAPSULAR WARNING SYNDROME
     Dosage: 60 MG, QD
  5. CILOSTAZOL. [Suspect]
     Active Substance: CILOSTAZOL
     Indication: CAPSULAR WARNING SYNDROME
     Dosage: 200 MG, QD

REACTIONS (3)
  - Medication monitoring error [None]
  - Cerebral infarction [Unknown]
  - Drug ineffective [Unknown]
